FAERS Safety Report 8438660-0 (Version None)
Quarter: 2012Q2

REPORT INFORMATION
  Report Type: 
  Country: None (occurrence: None)
  Receive Date: 20120615
  Receipt Date: 20120611
  Transmission Date: 20120825
  Serious: No
  Sender: FDA-Public Use
  Company Number: US-PFIZER INC-2012140750

PATIENT
  Age: 69 Year
  Sex: Male
  Weight: 90.703 kg

DRUGS (2)
  1. VIAGRA [Suspect]
     Dosage: 100 MG, AS NEEDED
  2. VIAGRA [Suspect]
     Indication: ERECTILE DYSFUNCTION
     Dosage: 50 MG, AS NEEDED

REACTIONS (3)
  - FLUSHING [None]
  - DRUG INEFFECTIVE [None]
  - BURNING SENSATION [None]
